FAERS Safety Report 6060440-4 (Version None)
Quarter: 2009Q1

REPORT INFORMATION
  Report Type: 
  Country: None (occurrence: None)
  Receive Date: 20090129
  Receipt Date: 20090115
  Transmission Date: 20090719
  Serious: Yes (Hospitalization)
  Sender: FDA-Public Use
  Company Number: 2008PV037311

PATIENT
  Age: 70 Year
  Sex: Male

DRUGS (15)
  1. SYMLIN [Suspect]
     Indication: TYPE 2 DIABETES MELLITUS
     Dosage: 60 MCG; BID; SC, 60 MCG; BID; SC, 15 MCG; BID; SC
     Route: 058
     Dates: start: 20080728, end: 20081001
  2. SYMLIN [Suspect]
     Indication: TYPE 2 DIABETES MELLITUS
     Dosage: 60 MCG; BID; SC, 60 MCG; BID; SC, 15 MCG; BID; SC
     Route: 058
     Dates: start: 20081001, end: 20081215
  3. SYMLIN [Suspect]
     Indication: TYPE 2 DIABETES MELLITUS
     Dosage: 60 MCG; BID; SC, 60 MCG; BID; SC, 15 MCG; BID; SC
     Route: 058
     Dates: start: 20080101
  4. NOVOLOG [Concomitant]
  5. LANTUS [Concomitant]
  6. COUMADIN [Concomitant]
  7. ACIPHEX [Concomitant]
  8. LASIX [Concomitant]
  9. COREG [Concomitant]
  10. POTASSIUM CHLORIDE [Concomitant]
  11. IRON [Concomitant]
  12. FISH OIL [Concomitant]
  13. CYMBALTA [Concomitant]
  14. COZAAR [Concomitant]
  15. WELLBUTRIN [Concomitant]

REACTIONS (2)
  - GLYCOSYLATED HAEMOGLOBIN INCREASED [None]
  - HYPERGLYCAEMIA [None]
